FAERS Safety Report 22016439 (Version 2)
Quarter: 2023Q1

REPORT INFORMATION
  Report Type: Report from Study
  Country: US (occurrence: US)
  Receive Date: 20230221
  Receipt Date: 20230315
  Transmission Date: 20230417
  Serious: Yes (Hospitalization)
  Sender: FDA-Public Use
  Company Number: US-JNJFOC-20230234269

PATIENT
  Age: 65 Year
  Sex: Female

DRUGS (4)
  1. SELEXIPAG [Suspect]
     Active Substance: SELEXIPAG
     Indication: Pulmonary arterial hypertension
     Dosage: THERAPY START DATE: 06/FEB/2023
     Route: 048
  2. SELEXIPAG [Suspect]
     Active Substance: SELEXIPAG
     Route: 048
     Dates: start: 202108
  3. ADEMPAS [Concomitant]
     Active Substance: RIOCIGUAT
     Indication: Product used for unknown indication
     Route: 065
  4. AMBRISENTAN [Concomitant]
     Active Substance: AMBRISENTAN
     Indication: Product used for unknown indication
     Route: 065

REACTIONS (6)
  - Upper limb fracture [Unknown]
  - Lower limb fracture [Unknown]
  - Joint dislocation [Unknown]
  - COVID-19 [Unknown]
  - Hypotension [Unknown]
  - Oxygen consumption increased [Unknown]

NARRATIVE: CASE EVENT DATE: 20230101
